FAERS Safety Report 5366035-X (Version None)
Quarter: 2007Q2

REPORT INFORMATION
  Report Type: 
  Country: None (occurrence: None)
  Receive Date: 20070611
  Receipt Date: 20070124
  Transmission Date: 20071010
  Serious: Yes (Death, Hospitalization)
  Sender: FDA-Public Use
  Company Number: USA-2007-0026289

PATIENT
  Age: 30 Year
  Sex: Male

DRUGS (2)
  1. OXYCONTIN [Suspect]
     Indication: DRUG ABUSER
  2. ALCOHOL (ETHANOL) [Suspect]
     Indication: ALCOHOL USE

REACTIONS (2)
  - MULTIPLE DRUG OVERDOSE [None]
  - RESPIRATORY ARREST [None]
